FAERS Safety Report 10284459 (Version 2)
Quarter: 2014Q3

REPORT INFORMATION
  Report Type: Spontaneous
  Country: US (occurrence: US)
  Receive Date: 20140708
  Receipt Date: 20140722
  Transmission Date: 20150326
  Serious: Yes (Hospitalization)
  Sender: FDA-Public Use
  Company Number: US-IPSEN BIOPHARMACEUTICALS, INC.-2014-3337

PATIENT
  Age: 41 Year
  Sex: Female

DRUGS (3)
  1. DYSPORT [Suspect]
     Active Substance: ABOBOTULINUMTOXINA
     Indication: OFF LABEL USE
  2. DYSPORT [Suspect]
     Active Substance: ABOBOTULINUMTOXINA
     Indication: SKIN WRINKLING
     Dosage: 5 UNITS
     Route: 065
     Dates: start: 20140626, end: 20140626
  3. DYSPORT [Suspect]
     Active Substance: ABOBOTULINUMTOXINA
     Indication: SKIN WRINKLING
     Dosage: 75 UNITS
     Route: 065
     Dates: start: 20140620, end: 20140620

REACTIONS (9)
  - Pneumothorax [Recovered/Resolved]
  - Inappropriate schedule of drug administration [Unknown]
  - Product reconstitution issue [Unknown]
  - Chest discomfort [Recovered/Resolved]
  - Drug effect decreased [Unknown]
  - Overdose [Unknown]
  - Dysphonia [Recovered/Resolved]
  - Wrong technique in drug usage process [Unknown]
  - Dyspnoea [Recovered/Resolved]

NARRATIVE: CASE EVENT DATE: 20140627
